FAERS Safety Report 5230056-8 (Version None)
Quarter: 2007Q1

REPORT INFORMATION
  Report Type: 
  Country: None (occurrence: None)
  Receive Date: 20070206
  Receipt Date: 20061009
  Transmission Date: 20070707
  Serious: Yes (Hospitalization)
  Sender: FDA-Public Use
  Company Number: US-GLAXOSMITHKLINE-A0622930A

PATIENT
  Age: 52 Year
  Sex: Male

DRUGS (8)
  1. PAXIL [Suspect]
     Indication: ANXIETY
     Route: 048
  2. PAXIL CR [Suspect]
     Indication: DRUG USE FOR UNKNOWN INDICATION
     Dosage: 37.5MG UNKNOWN
     Route: 048
  3. BUSPAR [Concomitant]
  4. NEXIUM [Concomitant]
  5. METFORMIN HCL [Concomitant]
  6. TRAZODONE HCL [Concomitant]
  7. LIPITOR [Concomitant]
  8. ALTACE [Concomitant]

REACTIONS (4)
  - ANXIETY [None]
  - CHEST DISCOMFORT [None]
  - CHEST PAIN [None]
  - DRUG INEFFECTIVE [None]
